FAERS Safety Report 6126052-9 (Version None)
Quarter: 2009Q1

REPORT INFORMATION
  Report Type: 
  Country: None (occurrence: None)
  Receive Date: 20090320
  Receipt Date: 20090311
  Transmission Date: 20090719
  Serious: Yes (Other)
  Sender: FDA-Public Use
  Company Number: DE-JNJFOC-20081103016

PATIENT
  Age: 53 Year
  Sex: Female
  Weight: 80 kg

DRUGS (10)
  1. REMICADE [Suspect]
     Indication: RHEUMATOID ARTHRITIS
     Route: 042
  2. UNIMAX 5/5 [Concomitant]
  3. CALCIGEN D [Concomitant]
  4. BONIVA [Concomitant]
  5. VITAMIN E [Concomitant]
  6. UNIMAX [Concomitant]
  7. FOLIC ACID [Concomitant]
  8. SYNTESTAN [Concomitant]
  9. TRAMAGIT [Concomitant]
  10. METHOTREXATE [Concomitant]

REACTIONS (1)
  - BREAST CANCER [None]
